FAERS Safety Report 24288512 (Version 1)
Quarter: 2024Q3

REPORT INFORMATION
  Report Type: Spontaneous
  Country: NO (occurrence: US)
  Receive Date: 20240906
  Receipt Date: 20240906
  Transmission Date: 20241016
  Serious: Yes (Hospitalization, Other)
  Sender: AMNEAL
  Company Number: NO-AMNEAL PHARMACEUTICALS-2024-AMRX-03218

PATIENT

DRUGS (1)
  1. ZOMIG [Suspect]
     Active Substance: ZOLMITRIPTAN
     Indication: Migraine
     Dosage: 5 MILLIGRAM, AS NEEDED
     Route: 045
     Dates: start: 2018

REACTIONS (6)
  - Electrocardiogram ST segment elevation [Recovered/Resolved]
  - Dyspnoea [Unknown]
  - Troponin increased [Recovered/Resolved]
  - Chest pain [Recovered/Resolved]
  - Vasospasm [Recovered/Resolved]
  - Nausea [Recovered/Resolved]
